FAERS Safety Report 6391508-0 (Version None)
Quarter: 2009Q4

REPORT INFORMATION
  Report Type: 
  Country: None (occurrence: None)
  Receive Date: 20091005
  Receipt Date: 20090924
  Transmission Date: 20100525
  Serious: Yes (Other)
  Sender: FDA-Public Use
  Company Number: 2009US003207

PATIENT
  Age: 71 Year
  Sex: Male
  Weight: 113.4 kg

DRUGS (4)
  1. VESICARE [Suspect]
     Indication: DRUG USE FOR UNKNOWN INDICATION
     Dosage: 5 MG, UID/OD, ORAL
     Route: 048
     Dates: start: 20080918
  2. DETROL LA [Suspect]
     Dosage: 4 MG, UID/QD
     Dates: start: 20060101, end: 20060101
  3. DETROL LA [Suspect]
     Dosage: 4 MG, UID/QD
     Dates: start: 20070206
  4. CARDURA [Suspect]
     Indication: BENIGN PROSTATIC HYPERPLASIA
     Dosage: 4 MG, UID/QD
     Dates: start: 20070206

REACTIONS (2)
  - AORTIC VALVE INCOMPETENCE [None]
  - CEREBROVASCULAR ACCIDENT [None]
